FAERS Safety Report 7897854 (Version 4)
Quarter: 2014Q1

REPORT INFORMATION
  Report Type: Spontaneous
  Country: US (occurrence: US)
  Receive Date: 20110413
  Receipt Date: 20140325
  Transmission Date: 20141002
  Serious: Yes (Hospitalization, Other)
  Sender: FDA-Public Use
  Company Number: US-US-EMD SERONO, INC.-7052440

PATIENT
  Age: 45 Year
  Sex: Female
  Weight: 90 kg

DRUGS (3)
  1. REBIF [Suspect]
     Indication: RELAPSING-REMITTING MULTIPLE SCLEROSIS
     Route: 058
     Dates: start: 20040112, end: 20100831
  2. REBIF [Suspect]
     Route: 058
     Dates: start: 20140114
  3. ALEVE [Concomitant]
     Indication: PREMEDICATION

REACTIONS (3)
  - Intraductal proliferative breast lesion [Recovered/Resolved]
  - Feeling abnormal [Unknown]
  - Inappropriate schedule of drug administration [Unknown]
